FAERS Safety Report 8837211 (Version 1)
Quarter: 2012Q4

REPORT INFORMATION
  Report Type: 
  Country: US (occurrence: US)
  Receive Date: 20121012
  Receipt Date: 20121012
  Transmission Date: 20130627
  Serious: Yes (Hospitalization, Other)
  Sender: FDA-Public Use
  Company Number: US-009507513-2011SP014799

PATIENT

DRUGS (6)
  1. NUVARING [Suspect]
     Indication: CONTRACEPTION
     Route: 067
     Dates: start: 200903, end: 20090417
  2. ADVAIR [Concomitant]
     Indication: ASTHMA
     Dosage: 1 PUFF BID
     Route: 055
     Dates: start: 1988
  3. XOPENEX [Concomitant]
     Indication: ASTHMA
     Dosage: PRN
     Route: 055
     Dates: start: 1988
  4. ALBUTEROL [Concomitant]
     Indication: ASTHMA
     Dates: start: 1988
  5. METHOTREXATE [Concomitant]
     Indication: ANKYLOSING SPONDYLITIS
     Dosage: 0.8 ml, QW
     Route: 058
  6. GONADOTROPIN, CHORIONIC [Concomitant]
     Indication: MEDICAL DIET
     Dosage: INJECTION

REACTIONS (14)
  - Lung infiltration [Unknown]
  - Deep vein thrombosis [Unknown]
  - Pulmonary embolism [Unknown]
  - Pulmonary infarction [Unknown]
  - Hepatic cyst [Unknown]
  - Transient ischaemic attack [Unknown]
  - Peripheral embolism [Unknown]
  - Pneumonia [Recovered/Resolved]
  - Dizziness [Not Recovered/Not Resolved]
  - Chest pain [Not Recovered/Not Resolved]
  - Asthenia [Not Recovered/Not Resolved]
  - Headache [Unknown]
  - Oedema peripheral [Unknown]
  - Syncope [Unknown]
